FAERS Safety Report 9834264 (Version 2)
Quarter: 2014Q1

REPORT INFORMATION
  Report Type: Report from Study
  Country: CZ (occurrence: CZ)
  Receive Date: 20140122
  Receipt Date: 20140128
  Transmission Date: 20141002
  Serious: Yes (Hospitalization, Disabling, Other)
  Sender: FDA-Public Use
  Company Number: CZ-JNJFOC-20140107966

PATIENT
  Age: 75 Year
  Sex: Male
  Weight: 82 kg

DRUGS (2)
  1. REMICADE [Suspect]
     Indication: PSORIATIC ARTHROPATHY
     Dosage: STRENGTH: 100 MG??CALCULATE AS PER 5 MG/KG
     Route: 042
     Dates: start: 20111116, end: 20130904
  2. METHOTREXATE [Concomitant]
     Indication: PSORIATIC ARTHROPATHY
     Route: 065
     Dates: start: 20130514

REACTIONS (2)
  - Metastases to bone [Unknown]
  - Prostate cancer [Not Recovered/Not Resolved]
